FAERS Safety Report 5239553-2 (Version None)
Quarter: 2007Q1

REPORT INFORMATION
  Report Type: 
  Country: None (occurrence: None)
  Receive Date: 20070216
  Receipt Date: 20070205
  Transmission Date: 20070707
  Serious: Yes (Hospitalization)
  Sender: FDA-Public Use
  Company Number: HR-ROCHE-427269

PATIENT
  Age: 56 Year
  Sex: Female
  Weight: 66 kg

DRUGS (6)
  1. PEG-INTERFERON ALFA 2A (RO 25-8310) [Suspect]
     Route: 058
     Dates: start: 20050111, end: 20051123
  2. PEG-INTERFERON ALFA 2A (RO 25-8310) [Suspect]
     Dosage: DOSAGE FORM REPORTED AS VIALS.
     Route: 058
     Dates: end: 20051210
  3. RIBAVIRIN [Suspect]
     Route: 048
     Dates: start: 20050111
  4. ATENOLOL [Concomitant]
     Dates: start: 20040615
  5. MODURETIC 5-50 [Concomitant]
     Dates: start: 20040615
  6. LASIX [Concomitant]
     Dates: start: 20040615

REACTIONS (1)
  - EPISTAXIS [None]
